FAERS Safety Report 9315280 (Version 1)
Quarter: 2013Q2

REPORT INFORMATION
  Report Type: Spontaneous
  Country: BR (occurrence: BR)
  Receive Date: 20130529
  Receipt Date: 20130529
  Transmission Date: 20140414
  Serious: Yes (Other)
  Sender: FDA-Public Use
  Company Number: BR-ASTRAZENECA-2013SE35606

PATIENT
  Age: 66 Year
  Sex: Female

DRUGS (2)
  1. OMEPRAZOLE [Suspect]
     Indication: PEPTIC ULCER
     Route: 048
     Dates: start: 2000
  2. OMEPRAZOLE [Suspect]
     Indication: PEPTIC ULCER
     Route: 048

REACTIONS (3)
  - Hypomagnesaemia [Unknown]
  - Hypocalcaemia [Recovered/Resolved]
  - Hypoparathyroidism secondary [Recovered/Resolved]
